FAERS Safety Report 7332414-4 (Version None)
Quarter: 2011Q1

REPORT INFORMATION
  Report Type: 
  Country: None (occurrence: None)
  Receive Date: 20110304
  Receipt Date: 20110223
  Transmission Date: 20110831
  Serious: Yes (Hospitalization)
  Sender: FDA-Public Use
  Company Number: US-AMGEN-USASP2011010523

PATIENT
  Age: 83 Year
  Sex: Female

DRUGS (1)
  1. ENBREL [Suspect]
     Indication: RHEUMATOID ARTHRITIS
     Dates: start: 20070623

REACTIONS (5)
  - SPINAL COMPRESSION FRACTURE [None]
  - FALL [None]
  - DECREASED APPETITE [None]
  - NAUSEA [None]
  - FATIGUE [None]
